FAERS Safety Report 5917116-0 (Version None)
Quarter: 2008Q4

REPORT INFORMATION
  Report Type: 
  Country: None (occurrence: None)
  Receive Date: 20081014
  Receipt Date: 20081003
  Transmission Date: 20090506
  Serious: Yes (Disabling)
  Sender: FDA-Public Use
  Company Number: US-ELI_LILLY_AND_COMPANY-US200810001773

PATIENT
  Age: 67 Year
  Sex: Male
  Weight: 90.703 kg

DRUGS (1)
  1. CIALIS [Suspect]
     Indication: ERECTILE DYSFUNCTION
     Dosage: 10 MG, UNK
     Dates: start: 20040129, end: 20080906

REACTIONS (3)
  - HYPOACUSIS [None]
  - TINNITUS [None]
  - VISUAL IMPAIRMENT [None]
